FAERS Safety Report 7986465-7 (Version None)
Quarter: 2011Q4

REPORT INFORMATION
  Report Type: 
  Country: None (occurrence: None)
  Receive Date: 20111216
  Receipt Date: 20110720
  Transmission Date: 20120403
  Serious: No
  Sender: FDA-Public Use
  Company Number: US-BRISTOL-MYERS SQUIBB COMPANY-15914229

PATIENT
  Age: 62 Year
  Sex: Female

DRUGS (1)
  1. ABILIFY [Suspect]
     Dosage: DOSE REDUCED TO 7.5MG.

REACTIONS (4)
  - CONFUSIONAL STATE [None]
  - IRRITABILITY [None]
  - FLAT AFFECT [None]
  - PSYCHOMOTOR SKILLS IMPAIRED [None]
